FAERS Safety Report 9835655 (Version 2)
Quarter: 2014Q3

REPORT INFORMATION
  Report Type: Spontaneous
  Country: GB (occurrence: GB)
  Receive Date: 20140122
  Receipt Date: 20140910
  Transmission Date: 20150326
  Serious: Yes (Other)
  Sender: FDA-Public Use
  Company Number: PHHY2014GB003490

PATIENT
  Age: 60 Year
  Sex: Male

DRUGS (2)
  1. DUODOPA [Suspect]
     Active Substance: CARBIDOPA\LEVODOPA
     Dates: start: 20110208
  2. RIFAMPICIN [Suspect]
     Active Substance: RIFAMPIN
     Indication: BACTERIAL DISEASE CARRIER

REACTIONS (6)
  - Catheter site discharge [Unknown]
  - On and off phenomenon [Unknown]
  - Stoma site reaction [Unknown]
  - Excessive granulation tissue [Unknown]
  - Parkinson^s disease [Recovered/Resolved]
  - Staphylococcal infection [Unknown]
